FAERS Safety Report 25613393 (Version 2)
Quarter: 2025Q3

REPORT INFORMATION
  Report Type: Spontaneous
  Country: CH (occurrence: CH)
  Receive Date: 20250728
  Receipt Date: 20250806
  Transmission Date: 20251021
  Serious: Yes (Hospitalization, Other)
  Sender: TAKEDA
  Company Number: CH-TAKEDA-2025TUS066230

PATIENT
  Age: 68 Year
  Sex: Female

DRUGS (4)
  1. BORTEZOMIB [Suspect]
     Active Substance: BORTEZOMIB
     Indication: Plasma cell myeloma
  2. DEXAMETHASONE [Suspect]
     Active Substance: DEXAMETHASONE
     Indication: Plasma cell myeloma
  3. LENALIDOMIDE [Suspect]
     Active Substance: LENALIDOMIDE
     Indication: Plasma cell myeloma
  4. TOLODODEKIN ALFA [Suspect]
     Active Substance: TOLODODEKIN ALFA
     Indication: Plasma cell myeloma

REACTIONS (7)
  - Plasma cell myeloma [Unknown]
  - Therapy partial responder [Unknown]
  - Pneumonia parainfluenzae viral [Unknown]
  - Superinfection bacterial [Unknown]
  - Hypervolaemia [Unknown]
  - Cardiac failure [Unknown]
  - Intentional product use issue [Unknown]
